FAERS Safety Report 11029638 (Version 1)
Quarter: 2015Q2

REPORT INFORMATION
  Report Type: Spontaneous
  Country: FR (occurrence: FR)
  Receive Date: 20150415
  Receipt Date: 20150415
  Transmission Date: 20150821
  Serious: Yes (Hospitalization)
  Sender: FDA-Public Use
  Company Number: FR-ROCHE-1563824

PATIENT
  Age: 68 Year
  Sex: Male

DRUGS (8)
  1. XOLAIR [Suspect]
     Active Substance: OMALIZUMAB
     Dosage: 0.0714 DF, (1 DF, 1 IN 2 WEEKS) BIW
     Route: 058
     Dates: start: 2014, end: 2014
  2. PERMIXON [Concomitant]
     Active Substance: SAW PALMETTO
     Route: 065
  3. KARDEGIC [Concomitant]
     Active Substance: ASPIRIN LYSINE
     Route: 065
  4. XOLAIR [Suspect]
     Active Substance: OMALIZUMAB
     Indication: ASTHMA
     Dosage: 0.0714 DF, (1 DF, 1 IN 2 WEEKS) BIW
     Route: 058
     Dates: start: 2012
  5. SERETIDE [Concomitant]
     Active Substance: FLUTICASONE FUROATE\SALMETEROL XINAFOATE
     Dosage: SINGLE DOSE DRY POWDER FOR INHALATION, 500/50 UG
     Route: 065
  6. TAHOR [Concomitant]
     Active Substance: ATORVASTATIN CALCIUM
     Dosage: FILM-COATED TABLET
     Route: 065
  7. MECIR [Concomitant]
     Active Substance: TAMSULOSIN HYDROCHLORIDE
     Dosage: FILM-COATED TABLET
     Route: 065
  8. AIROMIR [Concomitant]
     Active Substance: ALBUTEROL SULFATE
     Dosage: 100 UG
     Route: 065

REACTIONS (1)
  - Ischaemic stroke [Recovered/Resolved]

NARRATIVE: CASE EVENT DATE: 20150306
